FAERS Safety Report 4836938-0 (Version None)
Quarter: 2005Q4

REPORT INFORMATION
  Report Type: 
  Country: None (occurrence: None)
  Receive Date: 20051121
  Receipt Date: 20051108
  Transmission Date: 20060501
  Serious: Yes (Life-Threatening, Hospitalization, Other)
  Sender: FDA-Public Use
  Company Number: 2005-08-0846

PATIENT
  Age: 62 Year
  Sex: Male
  Weight: 73 kg

DRUGS (10)
  1. INTEGRILIN [Suspect]
     Dosage: SEE IMAGE
     Route: 042
     Dates: start: 20050523, end: 20050523
  2. INTEGRILIN [Suspect]
     Dosage: SEE IMAGE
     Route: 042
     Dates: start: 20050523, end: 20050524
  3. ATENOLOL [Suspect]
     Indication: MYOCARDIAL ISCHAEMIA
     Dosage: 25 MG QD ORAL
     Route: 048
     Dates: end: 20050524
  4. BIVALIRUDIN [Suspect]
     Dosage: SEE IMAGE
     Route: 042
     Dates: start: 20050523, end: 20050523
  5. BIVALIRUDIN [Suspect]
     Dosage: SEE IMAGE
     Route: 042
     Dates: start: 20050523, end: 20050531
  6. ASPIRIN [Concomitant]
  7. SIMVASTATIN [Concomitant]
  8. RAMIPRIL [Concomitant]
  9. IBUPROFEN [Concomitant]
  10. PARACETAMOL [Concomitant]

REACTIONS (8)
  - ATRIOVENTRICULAR BLOCK COMPLETE [None]
  - ATRIOVENTRICULAR BLOCK SECOND DEGREE [None]
  - BLOOD CREATININE INCREASED [None]
  - BLOOD UREA INCREASED [None]
  - BRADYCARDIA [None]
  - HYPOTENSION [None]
  - LOSS OF CONSCIOUSNESS [None]
  - PNEUMONIA [None]
